FAERS Safety Report 8020036-1 (Version None)
Quarter: 2012Q1

REPORT INFORMATION
  Report Type: 
  Country: None (occurrence: None)
  Receive Date: 20120103
  Receipt Date: 20111229
  Transmission Date: 20120608
  Serious: Yes (Other)
  Sender: FDA-Public Use
  Company Number: US-BAYER-2011-108877

PATIENT
  Age: 26 Year
  Sex: Female

DRUGS (4)
  1. BETASERON [Suspect]
     Indication: RELAPSING-REMITTING MULTIPLE SCLEROSIS
     Dosage: UNK
     Route: 058
     Dates: start: 20100220, end: 20110220
  2. IBUPROFEN [Concomitant]
  3. BETASERON [Suspect]
     Dosage: 8 MIU, QOD
  4. BETASERON [Suspect]
     Dosage: 4 MIU, QOD
     Route: 058
     Dates: start: 20111007

REACTIONS (10)
  - TENDON RUPTURE [None]
  - HYPERTENSION [None]
  - ROAD TRAFFIC ACCIDENT [None]
  - LIGAMENT RUPTURE [None]
  - PRURITUS GENERALISED [None]
  - PREGNANCY [None]
  - OPTIC NEURITIS [None]
  - HYPOAESTHESIA [None]
  - FATIGUE [None]
  - EXOPHTHALMOS [None]
